FAERS Safety Report 5093293-1 (Version None)
Quarter: 2006Q3

REPORT INFORMATION
  Report Type: 
  Country: None (occurrence: None)
  Receive Date: 20060828
  Receipt Date: 20060817
  Transmission Date: 20061208
  Serious: Yes (Hospitalization)
  Sender: FDA-Public Use
  Company Number: 235096K06USA

PATIENT
  Age: 58 Year
  Sex: Female

DRUGS (7)
  1. REBIF [Suspect]
     Indication: MULTIPLE SCLEROSIS
     Dosage: 44 MCG, 3 IN 1 WEEKS, SUBCUTANEOUS
     Route: 058
     Dates: start: 20040329
  2. BENICAR [Concomitant]
  3. CARDIA (ANTIHYPERTENSIVES) [Concomitant]
  4. PROPAFENONE HCL [Concomitant]
  5. ZOCOR [Concomitant]
  6. OMEPRAZOLE [Concomitant]
  7. OXYBUTYNIN [Concomitant]

REACTIONS (5)
  - BLOOD HOMOCYSTEINE INCREASED [None]
  - COLITIS ISCHAEMIC [None]
  - FACTOR VIII DEFICIENCY [None]
  - GENE MUTATION [None]
  - HYPERCOAGULATION [None]
